FAERS Safety Report 8377937-4 (Version None)
Quarter: 2012Q2

REPORT INFORMATION
  Report Type: 
  Country: None (occurrence: None)
  Receive Date: 20120522
  Receipt Date: 20120514
  Transmission Date: 20120825
  Serious: Yes (Disabling, Other)
  Sender: FDA-Public Use
  Company Number: PHHY2012US040866

PATIENT
  Age: 43 Year
  Sex: Male

DRUGS (9)
  1. ZANTAC [Concomitant]
     Indication: GASTROOESOPHAGEAL REFLUX DISEASE
  2. TEGRETOL [Concomitant]
  3. MAGNESIUM HYDROXIDE TAB [Suspect]
     Indication: PEPTIC ULCER
     Dosage: 1 DF, TID
     Route: 048
     Dates: end: 20120501
  4. PHENOBARBITAL TAB [Concomitant]
  5. CHOLESTEROL PILLS [Concomitant]
     Indication: BLOOD CHOLESTEROL INCREASED
  6. MAGNESIUM HYDROXIDE TAB [Suspect]
     Indication: GASTROOESOPHAGEAL REFLUX DISEASE
  7. MAGNESIUM HYDROXIDE TAB [Suspect]
     Dosage: 1 TSP
     Route: 048
     Dates: end: 20120501
  8. MAGNESIUM HYDROXIDE TAB [Suspect]
  9. ZANTAC [Concomitant]
     Indication: PEPTIC ULCER

REACTIONS (5)
  - CEREBROVASCULAR ACCIDENT [None]
  - GASTRIC PH DECREASED [None]
  - ABDOMINAL PAIN UPPER [None]
  - BLINDNESS UNILATERAL [None]
  - BLOOD CHOLESTEROL INCREASED [None]
